FAERS Safety Report 7712365-3 (Version None)
Quarter: 2011Q3

REPORT INFORMATION
  Report Type: 
  Country: None (occurrence: None)
  Receive Date: 20110826
  Receipt Date: 20110818
  Transmission Date: 20111222
  Serious: Yes (Hospitalization)
  Sender: FDA-Public Use
  Company Number: ES-ROCHE-798200

PATIENT
  Age: 66 Year
  Sex: Female

DRUGS (4)
  1. XELODA [Suspect]
     Indication: COLORECTAL CANCER
     Dosage: ROUTE INTRAVENOUS UNSPECIFIED
     Route: 065
     Dates: start: 20110307, end: 20110307
  2. DEXAMETHASONE [Concomitant]
     Indication: PREMEDICATION
     Route: 042
     Dates: start: 20110307, end: 20110307
  3. OXALIPLATIN [Interacting]
     Indication: COLORECTAL CANCER
     Dosage: ROUTE INTRAVENOUS UNSPECIFIED
     Route: 042
     Dates: start: 20110307, end: 20110307
  4. KYTRIL [Concomitant]
     Indication: PREMEDICATION
     Route: 042
     Dates: start: 20110307, end: 20110307

REACTIONS (6)
  - THROMBOCYTOPENIA [None]
  - DIARRHOEA [None]
  - VOMITING [None]
  - NEUTROPENIA [None]
  - HYPONATRAEMIA [None]
  - SEPTIC SHOCK [None]
